FAERS Safety Report 24659272 (Version 1)
Quarter: 2024Q4

REPORT INFORMATION
  Report Type: Report from Study
  Country: US (occurrence: US)
  Receive Date: 20241125
  Receipt Date: 20241125
  Transmission Date: 20250115
  Serious: Yes (Other)
  Sender: REGENERON
  Company Number: US-REGENERON PHARMACEUTICALS, INC.-2024-158886

PATIENT
  Sex: Female

DRUGS (1)
  1. CEMIPLIMAB [Suspect]
     Active Substance: CEMIPLIMAB
     Indication: Lung neoplasm malignant
     Dosage: 350 MG, Q3W
     Route: 042
     Dates: start: 20240228, end: 20241017

REACTIONS (4)
  - Drug hypersensitivity [Unknown]
  - Diarrhoea [Unknown]
  - Rash [Unknown]
  - Adverse event [Unknown]

NARRATIVE: CASE EVENT DATE: 20241017
